FAERS Safety Report 5362504-7 (Version None)
Quarter: 2007Q2

REPORT INFORMATION
  Report Type: 
  Country: None (occurrence: None)
  Receive Date: 20070619
  Receipt Date: 20070605
  Transmission Date: 20071010
  Serious: Yes (Hospitalization)
  Sender: FDA-Public Use
  Company Number: US-SHR-US-2007-019054

PATIENT
  Age: 35 Year
  Sex: Female
  Weight: 45.351 kg

DRUGS (6)
  1. BETASERON [Suspect]
     Indication: RELAPSING-REMITTING MULTIPLE SCLEROSIS
     Dosage: 8 MIU, EVERY 2D
     Route: 058
     Dates: start: 19940101
  2. VITAMIN B-12 [Concomitant]
  3. VICODIN [Concomitant]
  4. GABAPENTIN [Concomitant]
  5. VESICARE [Concomitant]
  6. AMITRIPTYLINE HCL [Concomitant]

REACTIONS (6)
  - EPSTEIN-BARR VIRUS INFECTION [None]
  - FEELING ABNORMAL [None]
  - GAIT DISTURBANCE [None]
  - HEART RATE IRREGULAR [None]
  - HYPOAESTHESIA [None]
  - MYOCARDIAL INFARCTION [None]
